FAERS Safety Report 9521584 (Version 1)
Quarter: 2013Q1

REPORT INFORMATION
  Report Type: Spontaneous
  Country: US (occurrence: None)
  Receive Date: 20130305
  Receipt Date: 20130305
  Transmission Date: 20140127
  Serious: Yes (Other)
  Sender: FDA-Public Use
  Company Number: 163-21880-12011394

PATIENT
  Age: 74 Year
  Sex: Male

DRUGS (5)
  1. REVLIMID [Suspect]
     Indication: MYELODYSPLASTIC SYNDROME
     Route: 048
     Dates: start: 20111229
  2. ATACAND (CANDESARTAN) [Concomitant]
  3. ACYCLOVIR (ACYCLOVIR) [Concomitant]
  4. FLUOCANZOLE (FLUCONAZOLE) [Concomitant]
  5. SMZ-TMP DS(BACTRIM) [Concomitant]

REACTIONS (3)
  - Swelling face [None]
  - Erythema [None]
  - Eye swelling [None]
